FAERS Safety Report 9290075 (Version 1)
Quarter: 2013Q2

REPORT INFORMATION
  Report Type: Spontaneous
  Country: US (occurrence: US)
  Receive Date: 20130515
  Receipt Date: 20130515
  Transmission Date: 20140414
  Serious: Yes (Other)
  Sender: FDA-Public Use
  Company Number: US-JNJFOC-20130505305

PATIENT
  Sex: 0

DRUGS (4)
  1. HUMAN CLOTTABLE PROTEIN/HUMAN THROMBIN [Suspect]
     Indication: HAEMORRHAGE PROPHYLAXIS
     Route: 061
  2. HUMAN CLOTTABLE PROTEIN/HUMAN THROMBIN [Suspect]
     Indication: TISSUE SEALING
     Route: 061
  3. ALL OTHER THERAPEUTIC PRODUCTS [Concomitant]
     Indication: HAEMORRHAGE PROPHYLAXIS
     Route: 065
  4. ALL OTHER THERAPEUTIC PRODUCTS [Concomitant]
     Indication: TISSUE SEALING
     Route: 065

REACTIONS (2)
  - Anastomotic leak [Unknown]
  - Off label use [Unknown]
